FAERS Safety Report 10301068 (Version 2)
Quarter: 2014Q3

REPORT INFORMATION
  Report Type: Report from Study
  Country: US (occurrence: US)
  Receive Date: 20140714
  Receipt Date: 20140807
  Transmission Date: 20150326
  Serious: Yes (Other)
  Sender: FDA-Public Use
  Company Number: US-ACTELION-A-US2014-101738

PATIENT
  Age: 48 Year
  Sex: Male

DRUGS (3)
  1. RIOCIGUAT [Concomitant]
     Active Substance: RIOCIGUAT
  2. XARELTO [Concomitant]
     Active Substance: RIVAROXABAN
  3. TRACLEER [Suspect]
     Active Substance: BOSENTAN\BOSENTAN MONOHYDRATE
     Indication: PULMONARY HYPERTENSION
     Dosage: 125 MG, BID
     Route: 048
     Dates: start: 2002

REACTIONS (6)
  - Dyspnoea [Unknown]
  - Pulmonary thrombosis [Unknown]
  - Syncope [Recovered/Resolved]
  - Pulmonary arterial pressure increased [Unknown]
  - Fatigue [Unknown]
  - Cough [Unknown]

NARRATIVE: CASE EVENT DATE: 20140701
